FAERS Safety Report 7328503-0 (Version None)
Quarter: 2011Q1

REPORT INFORMATION
  Report Type: 
  Country: None (occurrence: None)
  Receive Date: 20110216
  Receipt Date: 20110209
  Transmission Date: 20110831
  Serious: Yes (Hospitalization)
  Sender: FDA-Public Use
  Company Number: WAES 1102FRA00070

PATIENT
  Age: 23 Year
  Sex: Male

DRUGS (4)
  1. NORVIR [Suspect]
     Indication: HIV INFECTION
     Dosage: PO
     Route: 048
     Dates: start: 20110105, end: 20110114
  2. PREZISTA [Suspect]
     Indication: HIV INFECTION
     Dosage: PO
     Route: 048
     Dates: start: 20110105, end: 20110114
  3. ACETAMINOPHEN [Concomitant]
  4. TAB RALTEGRAVIR POTASSIUM [Suspect]
     Indication: HIV INFECTION
     Dosage: 400 MG/BID PO
     Route: 048
     Dates: start: 20110105, end: 20110114

REACTIONS (3)
  - MOUTH ULCERATION [None]
  - PYREXIA [None]
  - RASH PAPULAR [None]
